FAERS Safety Report 16733902 (Version 2)
Quarter: 2019Q3

REPORT INFORMATION
  Report Type: Spontaneous
  Country: US (occurrence: US)
  Receive Date: 20190823
  Receipt Date: 20190828
  Transmission Date: 20191005
  Serious: No
  Sender: FDA-Public Use
  Company Number: US-TEVA-2019-US-1095270

PATIENT
  Age: 12 Year
  Sex: Male

DRUGS (1)
  1. METHYLPHENIDATE HYDROCHLORIDE TEVA [Suspect]
     Active Substance: METHYLPHENIDATE HYDROCHLORIDE
     Indication: ATTENTION DEFICIT/HYPERACTIVITY DISORDER
     Dates: start: 201906

REACTIONS (4)
  - Disturbance in attention [Unknown]
  - Therapeutic product effect incomplete [Unknown]
  - Agitation [Unknown]
  - Product substitution issue [Unknown]

NARRATIVE: CASE EVENT DATE: 201906
